FAERS Safety Report 9252693 (Version 1)
Quarter: 2013Q1

REPORT INFORMATION
  Report Type: Spontaneous
  Country: US (occurrence: None)
  Receive Date: 20130305
  Receipt Date: 20130305
  Transmission Date: 20140127
  Serious: Yes (Other)
  Sender: FDA-Public Use
  Company Number: 163-21880-12091300

PATIENT
  Age: 92 Year
  Sex: Female
  Weight: 67.13 kg

DRUGS (1)
  1. REVLIMID (LENALIDOMIDE) (2.5 MILLIGRAM, CAPSULES) [Suspect]
     Indication: PLASMA CELL MYELOMA
     Route: 048
     Dates: start: 20120816

REACTIONS (1)
  - Dizziness [None]
